FAERS Safety Report 4989828-7 (Version None)
Quarter: 2006Q2

REPORT INFORMATION
  Report Type: 
  Country: None (occurrence: None)
  Receive Date: 20060428
  Receipt Date: 20060419
  Transmission Date: 20061013
  Serious: Yes (Hospitalization)
  Sender: FDA-Public Use
  Company Number: 2006-04-1274

PATIENT
  Age: 59 Year
  Sex: Male

DRUGS (2)
  1. PEG-INTRON [Suspect]
     Indication: HEPATITIS C
     Dosage: 80 MCG QW SUBCUTANEOUS
     Route: 058
     Dates: start: 20051117, end: 20060418
  2. REBETOL [Suspect]
     Indication: HEPATITIS C
     Dosage: 600 MG ORAL
     Route: 048
     Dates: start: 20051117, end: 20060418

REACTIONS (2)
  - EYE DISORDER [None]
  - FACIAL NEURALGIA [None]
